FAERS Safety Report 4607708-3 (Version None)
Quarter: 2005Q1

REPORT INFORMATION
  Report Type: 
  Country: None (occurrence: None)
  Receive Date: 20050310
  Receipt Date: 20050303
  Transmission Date: 20050727
  Serious: Yes (Other)
  Sender: FDA-Public Use
  Company Number: 05-0032-PO

PATIENT
  Age: 66 Year
  Sex: Female

DRUGS (9)
  1. PONSTAN FORTE (MEFENAMIC ACID) / PONSTEL / NDA 15-034 [Suspect]
     Indication: PAIN IN EXTREMITY
     Dosage: 500 MG, TWICE DAILY, PO
     Route: 048
     Dates: start: 20050218, end: 20050201
  2. BENADRYL [Concomitant]
  3. OFTAN DEXTA [Concomitant]
  4. AURORIX [Concomitant]
  5. LIBRAX [Concomitant]
  6. SOMAC [Concomitant]
  7. TANNOPON [Concomitant]
  8. VITAMIN PRODUCTS [Concomitant]
  9. UNSPECIFIED HORMONE MEDICATION [Concomitant]

REACTIONS (7)
  - DIARRHOEA [None]
  - DRUG INEFFECTIVE [None]
  - EYE PAIN [None]
  - EYELID PAIN [None]
  - FLATULENCE [None]
  - INTRAOCULAR PRESSURE INCREASED [None]
  - VOMITING [None]
